FAERS Safety Report 8960118 (Version 1)
Quarter: 2012Q4

REPORT INFORMATION
  Report Type: 
  Country: US (occurrence: US)
  Receive Date: 20121212
  Receipt Date: 20121212
  Transmission Date: 20130627
  Serious: No
  Sender: FDA-Public Use
  Company Number: US-MYLANLABS-2012S1018068

PATIENT
  Sex: Male

DRUGS (4)
  1. CLOPIDOGREL TABLETS USP [Suspect]
     Route: 048
     Dates: start: 201208
  2. CLONIDINE TRANSDERMAL SYSTEM [Concomitant]
  3. COREG CR [Concomitant]
  4. EXFORGE [Concomitant]

REACTIONS (3)
  - Asthenia [Not Recovered/Not Resolved]
  - Dry mouth [Not Recovered/Not Resolved]
  - Constipation [Not Recovered/Not Resolved]
